FAERS Safety Report 24231020 (Version 1)
Quarter: 2024Q3

REPORT INFORMATION
  Report Type: Spontaneous
  Country: IE (occurrence: IE)
  Receive Date: 20240821
  Receipt Date: 20240821
  Transmission Date: 20241016
  Serious: Yes (Other)
  Sender: ROCHE
  Company Number: IE-ROCHE-10000058557

PATIENT
  Sex: Female

DRUGS (6)
  1. XOLAIR [Suspect]
     Active Substance: OMALIZUMAB
     Indication: Product used for unknown indication
     Route: 065
  2. ALLEGRA [Concomitant]
     Active Substance: FEXOFENADINE HYDROCHLORIDE
  3. BENADRYL [Concomitant]
     Active Substance: DIPHENHYDRAMINE HYDROCHLORIDE
  4. TYLENOL [Concomitant]
     Active Substance: ACETAMINOPHEN
  5. NASALCROM [Concomitant]
     Active Substance: CROMOLYN SODIUM
  6. ALBUTEROL [Concomitant]
     Active Substance: ALBUTEROL

REACTIONS (14)
  - Pyrexia [Recovered/Resolved]
  - Skin infection [Recovered/Resolved]
  - Lymphadenopathy [Recovered/Resolved]
  - Myalgia [Recovered/Resolved]
  - Lymph node pain [Recovered/Resolved]
  - Fatigue [Recovered/Resolved]
  - Bone disorder [Recovered/Resolved]
  - Hyperhidrosis [Unknown]
  - Sluggishness [Unknown]
  - Vision blurred [Unknown]
  - Myalgia [Recovered/Resolved]
  - Migraine [Unknown]
  - Nausea [Unknown]
  - Dehydration [Unknown]
